FAERS Safety Report 8123178-5 (Version None)
Quarter: 2012Q1

REPORT INFORMATION
  Report Type: 
  Country: None (occurrence: None)
  Receive Date: 20120208
  Receipt Date: 20120129
  Transmission Date: 20120608
  Serious: Yes (Hospitalization)
  Sender: FDA-Public Use
  Company Number: NL-MEDIMMUNE-MEDI-0014599

PATIENT
  Sex: Female
  Weight: 2.815 kg

DRUGS (2)
  1. FERRO [Concomitant]
  2. SYNAGIS [Suspect]
     Indication: PREMATURE BABY
     Route: 030
     Dates: start: 20111223, end: 20111223

REACTIONS (1)
  - INFECTION [None]
